FAERS Safety Report 14714638 (Version 1)
Quarter: 2018Q2

REPORT INFORMATION
  Report Type: Spontaneous
  Country: US (occurrence: US)
  Receive Date: 20180404
  Receipt Date: 20180404
  Transmission Date: 20180711
  Serious: No
  Sender: FDA-Public Use
  Company Number: US-GALDERMA-US17006363

PATIENT
  Age: 22 Year
  Sex: Female

DRUGS (8)
  1. PROACTIV SOLUTION DAILY PROTECTION PLUS SUNSCREEN SPF 30 [Suspect]
     Active Substance: AVOBENZONE\HOMOSALATE\OCTINOXATE\OCTISALATE\OXYBENZONE
     Indication: PRODUCT USED FOR UNKNOWN INDICATION
     Route: 061
     Dates: start: 20170622, end: 20170706
  2. PROACTIV MD DEEP CLEANSING WASH [Concomitant]
     Active Substance: COSMETICS
     Route: 061
     Dates: start: 20170622, end: 20170706
  3. PROACTIV MD ADAPALENE ACNE TREATMENT [Suspect]
     Active Substance: ADAPALENE
     Indication: PRODUCT USED FOR UNKNOWN INDICATION
     Dosage: 0.1%
     Route: 061
     Dates: start: 20170622, end: 20170706
  4. MIDOL [Concomitant]
     Active Substance: IBUPROFEN
  5. PROACTIV GREEN TEA MOISTURIZER [Concomitant]
     Active Substance: COSMETICS
     Route: 061
     Dates: start: 20170622, end: 20170706
  6. TYLENOL [Concomitant]
     Active Substance: ACETAMINOPHEN
  7. PROACTIVE MD BALANCING TONER [Concomitant]
     Route: 061
     Dates: start: 20170622, end: 20170706
  8. IBUPROFEN. [Concomitant]
     Active Substance: IBUPROFEN

REACTIONS (2)
  - Dry skin [Recovered/Resolved]
  - Skin burning sensation [Recovered/Resolved]

NARRATIVE: CASE EVENT DATE: 20160705
